FAERS Safety Report 4468667-X (Version None)
Quarter: 2004Q4

REPORT INFORMATION
  Report Type: 
  Country: None (occurrence: None)
  Receive Date: 20041007
  Receipt Date: 20041001
  Transmission Date: 20050328
  Serious: Yes (Other)
  Sender: FDA-Public Use
  Company Number: ES-MERCK-0410ESP00024

PATIENT
  Sex: Male

DRUGS (4)
  1. ASPIRIN [Concomitant]
     Route: 065
  2. CARVEDILOL [Concomitant]
     Route: 065
  3. ZETIA [Suspect]
     Indication: DYSLIPIDAEMIA
     Route: 048
     Dates: start: 20040604, end: 20040101
  4. RANITIDINE HYDROCHLORIDE [Concomitant]
     Route: 065

REACTIONS (4)
  - BLOOD CREATINE PHOSPHOKINASE INCREASED [None]
  - DIZZINESS [None]
  - HEPATITIS ACUTE [None]
  - WEIGHT DECREASED [None]
